FAERS Safety Report 19271837 (Version 1)
Quarter: 2021Q2

REPORT INFORMATION
  Report Type: Spontaneous
  Country: FR (occurrence: FR)
  Receive Date: 20210519
  Receipt Date: 20210519
  Transmission Date: 20210717
  Serious: Yes (Hospitalization)
  Sender: FDA-Public Use
  Company Number: FR-AUROBINDO-AUR-APL-2021-019944

PATIENT
  Sex: Male

DRUGS (1)
  1. MELPHALAN. [Suspect]
     Active Substance: MELPHALAN
     Indication: CHEMOTHERAPY
     Dosage: 380 MILLIGRAM
     Route: 041
     Dates: start: 20191121, end: 20191121

REACTIONS (2)
  - Rash [Recovered/Resolved]
  - Eccrine squamous syringometaplasia [Recovered/Resolved]

NARRATIVE: CASE EVENT DATE: 20191130
